FAERS Safety Report 8621666-6 (Version None)
Quarter: 2012Q3

REPORT INFORMATION
  Report Type: 
  Country: None (occurrence: None)
  Receive Date: 20120821
  Receipt Date: 20120821
  Transmission Date: 20120928
  Serious: Yes (Life-Threatening)
  Sender: FDA-Public Use
  Company Number: None

PATIENT
  Age: 73 Year
  Sex: Male
  Weight: 77.1115 kg

DRUGS (3)
  1. PRISTIQ [Suspect]
     Indication: ANXIETY
     Dosage: 50MG  DAILY PO
     Route: 048
     Dates: start: 20120704, end: 20120814
  2. PRISTIQ [Suspect]
     Indication: NERVOUSNESS
     Dosage: 50MG  DAILY PO
     Route: 048
     Dates: start: 20120704, end: 20120814
  3. PRISTIQ [Suspect]
     Indication: DEPRESSED MOOD
     Dosage: 50MG  DAILY PO
     Route: 048
     Dates: start: 20120704, end: 20120814

REACTIONS (7)
  - ABDOMINAL DISTENSION [None]
  - CHEST PAIN [None]
  - MUSCLE SPASMS [None]
  - PAIN IN EXTREMITY [None]
  - FATIGUE [None]
  - FAECAL INCONTINENCE [None]
  - ABASIA [None]
